FAERS Safety Report 8699976 (Version 2)
Quarter: 2012Q4

REPORT INFORMATION
  Report Type: Report from Study
  Country: US (occurrence: US)
  Receive Date: 20120802
  Receipt Date: 20121010
  Transmission Date: 20130627
  Serious: Yes (Other)
  Sender: FDA-Public Use
  Company Number: US-CELGENEUS-163-20785-12072891

PATIENT
  Age: 81 Year
  Sex: Male
  Weight: 64.9 kg

DRUGS (8)
  1. THALOMID [Suspect]
     Indication: MYELOMA
     Dosage: 100 Milligram
     Route: 048
     Dates: start: 20090815
  2. THALOMID [Suspect]
     Dosage: 100 Milligram
     Route: 048
     Dates: start: 20110528, end: 20110722
  3. THALOMID [Suspect]
     Route: 048
  4. MELPHALAN [Suspect]
     Indication: MYELOMA
     Dosage: 9 milligram/sq. meter
     Route: 048
     Dates: start: 20090815
  5. PREDNISONE [Suspect]
     Indication: MYELOMA
     Dosage: 100 Milligram
     Route: 048
     Dates: start: 20090815
  6. ASPIRIN [Concomitant]
     Indication: DRUG USE FOR UNKNOWN INDICATION
     Dosage: 325 Milligram
     Route: 048
     Dates: start: 20090815
  7. ASPIRIN [Concomitant]
     Dosage: 325 Milligram
     Route: 048
     Dates: start: 20110528
  8. RED BLOOD CELL TRANSFUSIONS [Concomitant]
     Indication: DECREASED HEMOGLOBIN
     Route: 041

REACTIONS (1)
  - Acute myeloid leukaemia [Unknown]
